FAERS Safety Report 25765786 (Version 1)
Quarter: 2025Q3

REPORT INFORMATION
  Report Type: Spontaneous
  Country: US (occurrence: US)
  Receive Date: 20250905
  Receipt Date: 20250905
  Transmission Date: 20251020
  Serious: No
  Sender: DOMPE FARMACEUTICI
  Company Number: US-FARMAPROD-202407-2454

PATIENT
  Age: 69 Year
  Sex: Male

DRUGS (12)
  1. OXERVATE [Suspect]
     Active Substance: CENEGERMIN-BKBJ
     Indication: Neurotrophic keratopathy
     Route: 047
     Dates: start: 20240624, end: 20240823
  2. OXERVATE [Suspect]
     Active Substance: CENEGERMIN-BKBJ
  3. OXERVATE [Suspect]
     Active Substance: CENEGERMIN-BKBJ
  4. OXERVATE [Suspect]
     Active Substance: CENEGERMIN-BKBJ
  5. ATORVASTATIN CALCIUM [Concomitant]
     Active Substance: ATORVASTATIN CALCIUM
  6. ERYTHROMYCIN [Concomitant]
     Active Substance: ERYTHROMYCIN
  7. FUROSEMIDE [Concomitant]
     Active Substance: FUROSEMIDE
  8. SOTALOL [Concomitant]
     Active Substance: SOTALOL
  9. GABAPENTIN [Concomitant]
     Active Substance: GABAPENTIN
  10. XARELTO [Concomitant]
     Active Substance: RIVAROXABAN
  11. REFRESH PLUS [Concomitant]
     Active Substance: CARBOXYMETHYLCELLULOSE SODIUM
  12. PERCOCET [Concomitant]
     Active Substance: ACETAMINOPHEN\OXYCODONE HYDROCHLORIDE

REACTIONS (9)
  - Vision blurred [Recovering/Resolving]
  - Ocular hyperaemia [Not Recovered/Not Resolved]
  - Photophobia [Recovering/Resolving]
  - Eye pain [Not Recovered/Not Resolved]
  - Eye swelling [Recovering/Resolving]
  - Product dose omission issue [Recovering/Resolving]
  - Foreign body sensation in eyes [Recovering/Resolving]
  - COVID-19 [Unknown]
  - Drug ineffective [Unknown]

NARRATIVE: CASE EVENT DATE: 20240629
